FAERS Safety Report 25733293 (Version 2)
Quarter: 2025Q3

REPORT INFORMATION
  Report Type: Spontaneous
  Country: US (occurrence: US)
  Receive Date: 20250828
  Receipt Date: 20250917
  Transmission Date: 20251020
  Serious: Yes (Other)
  Sender: GALDERMA
  Company Number: US-GALDERMA-US2025015543

PATIENT

DRUGS (2)
  1. NEMLUVIO [Suspect]
     Active Substance: NEMOLIZUMAB-ILTO
     Indication: Dermatitis atopic
     Route: 058
     Dates: start: 20250618, end: 20250618
  2. NEMLUVIO [Suspect]
     Active Substance: NEMOLIZUMAB-ILTO
     Route: 058
     Dates: start: 20250718, end: 20250718

REACTIONS (5)
  - Myocardial infarction [Unknown]
  - Dyspnoea [Unknown]
  - Hepatic pain [Unknown]
  - Renal pain [Unknown]
  - Urinary tract infection [Unknown]

NARRATIVE: CASE EVENT DATE: 20250101
